FAERS Safety Report 8871336 (Version 1)
Quarter: 2012Q4

REPORT INFORMATION
  Report Type: 
  Country: US (occurrence: US)
  Receive Date: 20121026
  Receipt Date: 20121026
  Transmission Date: 20130627
  Serious: No
  Sender: FDA-Public Use
  Company Number: US-AMGEN-USASP2012048187

PATIENT
  Age: 53 Year
  Sex: Female
  Weight: 77.1 kg

DRUGS (5)
  1. ENBREL [Suspect]
     Indication: PRODUCT USED FOR UNKNOWN INDICATION
     Dosage: 50 mg, qwk
     Route: 058
  2. METHOTREXATE [Concomitant]
     Dosage: 2.5 mg, UNK
  3. MULTIVITAMIN                       /00097801/ [Concomitant]
     Dosage: UNK
  4. OMEGA 3                            /01334101/ [Concomitant]
     Dosage: 1000mg, UNK (3 Cap 1000 mg)
  5. FOLIC ACID [Concomitant]
     Dosage: UNK

REACTIONS (4)
  - Injection site erythema [Recovered/Resolved]
  - Injection site swelling [Recovered/Resolved]
  - Headache [Unknown]
  - Back pain [Unknown]
